FAERS Safety Report 6337497-6 (Version None)
Quarter: 2009Q3

REPORT INFORMATION
  Report Type: 
  Country: None (occurrence: None)
  Receive Date: 20090902
  Receipt Date: 20090824
  Transmission Date: 20100115
  Serious: Yes (Other)
  Sender: FDA-Public Use
  Company Number: US-ASTRAZENECA-2009UW21064

PATIENT
  Age: 15804 Day
  Sex: Male
  Weight: 90.7 kg

DRUGS (7)
  1. SEROQUEL [Suspect]
     Indication: INSOMNIA
     Route: 048
     Dates: start: 19970101
  2. CLOZARIL [Concomitant]
     Dates: start: 19970101
  3. PAXIL [Concomitant]
     Indication: DEPRESSION
     Dates: start: 19970101
  4. ZOLOFT [Concomitant]
     Route: 048
  5. ZOLOFT [Concomitant]
     Dosage: 50 MG EVERY AFTERNOON
     Route: 048
  6. TRAZODONE [Concomitant]
     Dosage: 150 MG 1/2 TO 1 EVERY NIGHT
     Route: 048
  7. ABILIFY [Concomitant]
     Dates: start: 19970101

REACTIONS (8)
  - ANXIETY [None]
  - BACK INJURY [None]
  - BLOOD TRIGLYCERIDES INCREASED [None]
  - CHEST PAIN [None]
  - MYOCARDIAL INFARCTION [None]
  - NERVOUSNESS [None]
  - OESOPHAGITIS [None]
  - TYPE 2 DIABETES MELLITUS [None]
